FAERS Safety Report 9312541 (Version 1)
Quarter: 2013Q2

REPORT INFORMATION
  Report Type: Spontaneous
  Country: GB (occurrence: None)
  Receive Date: 20130520
  Receipt Date: 20130520
  Transmission Date: 20140414
  Serious: Yes (Hospitalization)
  Sender: FDA-Public Use
  Company Number: CL-487-2013

PATIENT
  Age: 52 Year
  Sex: Female
  Weight: 69.85 kg

DRUGS (3)
  1. ONDANSETRON HYDROCHLORIDE [Suspect]
     Indication: PROPHYLAXIS
     Route: 042
     Dates: start: 20130426, end: 20130426
  2. ISOFLURANO [Suspect]
     Indication: ANAESTHESIA
     Route: 055
  3. PROPOFOL [Suspect]
     Indication: GENERAL ANAESTHESIA
     Route: 042
     Dates: start: 20130426, end: 20130426

REACTIONS (5)
  - Hyperventilation [None]
  - Mutism [None]
  - Slow response to stimuli [None]
  - Aphasia [None]
  - Tearfulness [None]
